FAERS Safety Report 12650093 (Version 2)
Quarter: 2016Q3

REPORT INFORMATION
  Report Type: Report from Study
  Country: US (occurrence: US)
  Receive Date: 20160813
  Receipt Date: 20160819
  Transmission Date: 20161109
  Serious: No
  Sender: FDA-Public Use
  Company Number: US-AMGEN-USASP2016102346

PATIENT
  Age: 59 Year
  Sex: Female

DRUGS (1)
  1. ENBREL [Suspect]
     Active Substance: ETANERCEPT
     Indication: RHEUMATOID ARTHRITIS
     Dosage: UNK UNK, QWK
     Route: 065
     Dates: start: 2016

REACTIONS (7)
  - Drug dose omission [Unknown]
  - Alopecia [Unknown]
  - Injection site swelling [Unknown]
  - Injection site mass [Unknown]
  - Injection site bruising [Unknown]
  - Local swelling [Unknown]
  - Hair disorder [Unknown]

NARRATIVE: CASE EVENT DATE: 2016
